FAERS Safety Report 10857433 (Version 1)
Quarter: 2015Q1

REPORT INFORMATION
  Report Type: Spontaneous
  Country: US (occurrence: US)
  Receive Date: 20150223
  Receipt Date: 20150223
  Transmission Date: 20150721
  Serious: No
  Sender: FDA-Public Use
  Company Number: US-TARO-2014TAR00445

PATIENT
  Age: 74 Year
  Sex: Female
  Weight: 49.89 kg

DRUGS (11)
  1. KIRKLAND BRAND MULTIVITAMIN [Concomitant]
     Dosage: 1 DOSAGE UNITS, 1X/DAY
  2. KIRKLAND BRAND GLUCOSAMINE [Concomitant]
     Dosage: 1 DOSAGE UNITS, 1X/DAY
  3. KIRKLAND BRAND FISH OIL [Concomitant]
     Dosage: 1 DOSAGE UNITS, 2X/DAY
     Dates: end: 201409
  4. KIRKLAND BRAND B COMPLEX VITAMIN [Concomitant]
     Dosage: 1 DOSAGE UNITS, 1X/DAY
  5. LORAZEPAM. [Concomitant]
     Active Substance: LORAZEPAM
     Dosage: UNK, AS NEEDED
  6. ENALAPRIL MALEATE TABLETS USP 5 MG [Suspect]
     Active Substance: ENALAPRIL MALEATE
     Dosage: 10 UNK, UNK
     Route: 048
     Dates: start: 20141004, end: 20141004
  7. KIRKLAND BRAND FISH OIL [Concomitant]
     Dosage: 1 DOSAGE UNITS, 1X/DAY
     Dates: start: 201409
  8. ENALAPRIL MALEATE TABLETS USP 5 MG [Suspect]
     Active Substance: ENALAPRIL MALEATE
     Indication: HYPERTENSION
     Dosage: 5 MG, 1X/DAY
     Route: 048
     Dates: start: 2014, end: 20141003
  9. AMBIEN [Concomitant]
     Active Substance: ZOLPIDEM TARTRATE
  10. KIRKLAND BRAND CALCIUM [Concomitant]
     Dosage: 1 DOSAGE UNITS, 1X/DAY
  11. CHONDROITIN SULFATE (BOVINE)\GLUCOSAMINE SULFATE [Concomitant]
     Active Substance: CHONDROITIN SULFATE (BOVINE)\GLUCOSAMINE SULFATE
     Dosage: 1 DOSAGE UNITS, 1X/DAY

REACTIONS (2)
  - Drug ineffective [Not Recovered/Not Resolved]
  - Product substitution issue [Not Recovered/Not Resolved]

NARRATIVE: CASE EVENT DATE: 2014
